FAERS Safety Report 24845308 (Version 1)
Quarter: 2025Q1

REPORT INFORMATION
  Report Type: Spontaneous
  Country: US (occurrence: None)
  Receive Date: 20250114
  Receipt Date: 20250114
  Transmission Date: 20250408
  Serious: Yes (Other)
  Sender: FDA-CTU
  Company Number: None

PATIENT
  Age: 64 Year
  Sex: Female
  Weight: 67.5 kg

DRUGS (1)
  1. XEMBIFY [Suspect]
     Active Substance: HUMAN IMMUNOGLOBULIN G
     Indication: Immunodeficiency common variable
     Route: 058
     Dates: start: 20250113, end: 20250113

REACTIONS (6)
  - Product use issue [None]
  - Infusion related reaction [None]
  - Infusion site pruritus [None]
  - Infusion site erythema [None]
  - Infusion site warmth [None]
  - Recalled product administered [None]

NARRATIVE: CASE EVENT DATE: 20250113
